FAERS Safety Report 13975164 (Version 2)
Quarter: 2019Q3

REPORT INFORMATION
  Report Type: Report from Study
  Country: IT (occurrence: IT)
  Receive Date: 20170915
  Receipt Date: 20190718
  Transmission Date: 20191004
  Serious: Yes (Hospitalization)
  Sender: FDA-Public Use
  Company Number: IT-ROCHE-1963210

PATIENT
  Age: 79 Year
  Sex: Female
  Weight: 81 kg

DRUGS (34)
  1. TARGIN [Concomitant]
     Active Substance: NALOXONE HYDROCHLORIDE\OXYCODONE HYDROCHLORIDE
     Route: 048
     Dates: start: 20170920, end: 20171010
  2. TARGIN [Concomitant]
     Active Substance: NALOXONE HYDROCHLORIDE\OXYCODONE HYDROCHLORIDE
     Route: 048
     Dates: start: 20170920, end: 20171010
  3. VANCOMICINA [VANCOMYCIN] [Concomitant]
     Active Substance: VANCOMYCIN
     Indication: SEPSIS
     Route: 042
     Dates: start: 20170430, end: 20170519
  4. SPIRONOLACTONE. [Concomitant]
     Active Substance: SPIRONOLACTONE
     Indication: CARDIAC FAILURE
     Dosage: UNK MG
     Route: 042
     Dates: start: 201705, end: 201705
  5. LASIX [Concomitant]
     Active Substance: FUROSEMIDE
     Route: 048
     Dates: start: 20170808, end: 20170810
  6. ARIXTRA [Concomitant]
     Active Substance: FONDAPARINUX SODIUM
     Route: 058
     Dates: start: 20170225, end: 201703
  7. RED BLOOD CELLS, CONCENTRATED [Concomitant]
     Active Substance: HUMAN RED BLOOD CELL
     Indication: SEPSIS
     Route: 042
     Dates: start: 20170430, end: 20170430
  8. PANTORC [Concomitant]
     Active Substance: PANTOPRAZOLE SODIUM
     Indication: GASTRITIS PROPHYLAXIS
     Route: 048
  9. ENALAPRIL [Concomitant]
     Active Substance: ENALAPRIL
     Indication: CARDIAC FAILURE
     Route: 048
     Dates: start: 201705, end: 201705
  10. LASIX [Concomitant]
     Active Substance: FUROSEMIDE
     Route: 048
  11. DEXIBUPROFEN [Concomitant]
     Active Substance: DEXIBUPROFEN
     Indication: ARTHRITIS
     Route: 048
     Dates: start: 20170303, end: 20170320
  12. LASIX [Concomitant]
     Active Substance: FUROSEMIDE
     Route: 048
     Dates: start: 20170627
  13. NORMIX [Concomitant]
     Active Substance: RIFAXIMIN
     Route: 048
     Dates: start: 20171213, end: 20171221
  14. TARGIN [Concomitant]
     Active Substance: NALOXONE HYDROCHLORIDE\OXYCODONE HYDROCHLORIDE
     Route: 048
     Dates: start: 20171030, end: 20180314
  15. TARGIN [Concomitant]
     Active Substance: NALOXONE HYDROCHLORIDE\OXYCODONE HYDROCHLORIDE
     Route: 048
     Dates: start: 20180315
  16. ORAMORPH [MORPHINE SULFATE] [Concomitant]
     Route: 048
     Dates: end: 20170519
  17. LEVOSULPIRIDE [Concomitant]
     Active Substance: LEVOSULPIRIDE
     Dosage: 10 DROPS
     Route: 048
     Dates: end: 20170519
  18. ALLOPURINOLO [Concomitant]
     Active Substance: ALLOPURINOL
     Indication: PROPHYLAXIS
     Route: 048
     Dates: start: 20170301
  19. LASIX [Concomitant]
     Active Substance: FUROSEMIDE
     Route: 048
     Dates: end: 20170626
  20. PLASIL [METOCLOPRAMIDE] [Concomitant]
     Indication: PROPHYLAXIS
     Route: 048
     Dates: start: 20170301
  21. TARGIN [Concomitant]
     Active Substance: NALOXONE HYDROCHLORIDE\OXYCODONE HYDROCHLORIDE
     Route: 048
     Dates: start: 20170811
  22. TARGIN [Concomitant]
     Active Substance: NALOXONE HYDROCHLORIDE\OXYCODONE HYDROCHLORIDE
     Route: 048
     Dates: start: 20171011, end: 20171029
  23. KCL-RETARD [Concomitant]
     Active Substance: POTASSIUM CHLORIDE
     Indication: HYPOKALAEMIA
     Route: 048
     Dates: start: 20170208, end: 20170430
  24. ARIXTRA [Concomitant]
     Active Substance: FONDAPARINUX SODIUM
     Route: 058
     Dates: start: 20170303, end: 20170430
  25. MEROPENEM. [Concomitant]
     Active Substance: MEROPENEM
     Indication: SEPSIS
     Dosage: SEPSIS
     Route: 042
     Dates: start: 20170430, end: 20170519
  26. FUROSEMIDE. [Concomitant]
     Active Substance: FUROSEMIDE
     Indication: CARDIAC FAILURE
     Dosage: GTT (DROP)
     Route: 042
     Dates: start: 201705, end: 201705
  27. NORMIX [Concomitant]
     Active Substance: RIFAXIMIN
     Indication: CONSTIPATION
     Route: 048
     Dates: start: 20171121, end: 20171127
  28. ATEZOLIZUMAB. [Suspect]
     Active Substance: ATEZOLIZUMAB
     Indication: NEOPLASM
     Dosage: DATE OF MOST RECENT DOSE OF ATEZOLIZUMAB: 18/JAN/2017 AT 11:10
     Route: 042
     Dates: start: 20170118
  29. SIDERAL FORTE [Concomitant]
     Active Substance: ASCORBIC ACID\FERRIC PYROPHOSPHATE
     Indication: ANAEMIA
     Route: 048
     Dates: start: 20170627
  30. SIDERAL FORTE [Concomitant]
     Active Substance: ASCORBIC ACID\FERRIC PYROPHOSPHATE
     Indication: ANAEMIA
  31. TARGIN [Concomitant]
     Active Substance: NALOXONE HYDROCHLORIDE\OXYCODONE HYDROCHLORIDE
     Route: 048
     Dates: end: 20170807
  32. PARACETAMOL [Concomitant]
     Active Substance: ACETAMINOPHEN
     Indication: SEPSIS
     Route: 048
     Dates: start: 20170430
  33. PARACETAMOL [Concomitant]
     Active Substance: ACETAMINOPHEN
     Route: 048
     Dates: start: 20180204, end: 20180211
  34. ARIXTRA [Concomitant]
     Active Substance: FONDAPARINUX SODIUM
     Route: 058
     Dates: end: 20170223

REACTIONS (1)
  - Pleural effusion [Recovered/Resolved]

NARRATIVE: CASE EVENT DATE: 20170208
